FAERS Safety Report 5121416-4 (Version None)
Quarter: 2006Q4

REPORT INFORMATION
  Report Type: 
  Country: None (occurrence: None)
  Receive Date: 20061002
  Receipt Date: 20060922
  Transmission Date: 20070319
  Serious: Yes (Death, Life-Threatening, Hospitalization)
  Sender: FDA-Public Use
  Company Number: 163-C5013-06090949

PATIENT
  Age: 71 Year
  Sex: Male
  Weight: 79.7 kg

DRUGS (10)
  1. CC-5013  (LENALIDOMIDE) [Suspect]
     Indication: NON-HODGKIN'S LYMPHOMA
     Dosage: 25 MG, DAILY X21 DAYS; ORAL
     Route: 048
     Dates: start: 20060711, end: 20060801
  2. CC-5013  (LENALIDOMIDE) [Suspect]
     Indication: NON-HODGKIN'S LYMPHOMA
     Dosage: 25 MG, DAILY X21 DAYS; ORAL
     Route: 048
     Dates: start: 20060801, end: 20060911
  3. LANOXIN [Concomitant]
  4. SOTALOL HCL [Concomitant]
  5. COUMADIN [Concomitant]
  6. ACTOS [Concomitant]
  7. AMARYL [Concomitant]
  8. DUONEB [Concomitant]
  9. PERCOCET [Concomitant]
  10. BETAPACE [Concomitant]

REACTIONS (15)
  - ANAEMIA [None]
  - ARRHYTHMIA [None]
  - ATRIAL FIBRILLATION [None]
  - CARDIAC FAILURE CONGESTIVE [None]
  - DISEASE PROGRESSION [None]
  - DYSPHAGIA [None]
  - HYPOTENSION [None]
  - LYMPHADENOPATHY [None]
  - NON-HODGKIN'S LYMPHOMA [None]
  - PAIN IN EXTREMITY [None]
  - SEPSIS [None]
  - SINUSITIS [None]
  - TACHYCARDIA [None]
  - THERAPEUTIC RESPONSE DECREASED [None]
  - THROMBOCYTOPENIA [None]
